FAERS Safety Report 11650484 (Version 9)
Quarter: 2017Q2

REPORT INFORMATION
  Report Type: Report from Study
  Country: US (occurrence: US)
  Receive Date: 20151021
  Receipt Date: 20170620
  Transmission Date: 20170829
  Serious: No
  Sender: FDA-Public Use
  Company Number: PHEH2015US020953

PATIENT
  Age: 42 Year
  Sex: Female
  Weight: 58 kg

DRUGS (3)
  1. AFINITOR [Suspect]
     Active Substance: EVEROLIMUS
     Indication: TUBEROUS SCLEROSIS
  2. AFINITOR [Suspect]
     Active Substance: EVEROLIMUS
     Indication: ASTROCYTOMA, LOW GRADE
     Dosage: 10 MG, QD
     Route: 048
     Dates: start: 20160403
  3. AFINITOR [Suspect]
     Active Substance: EVEROLIMUS
     Indication: ANGIOMYOLIPOMA
     Dosage: 10 MG, QD
     Route: 048
     Dates: start: 20150907

REACTIONS (13)
  - Rash [Recovered/Resolved]
  - Menorrhagia [Unknown]
  - Vitamin D decreased [Unknown]
  - Viral upper respiratory tract infection [Recovering/Resolving]
  - Contusion [Not Recovered/Not Resolved]
  - Kidney small [Not Recovered/Not Resolved]
  - Hypocalcaemia [Not Recovered/Not Resolved]
  - Mucosal inflammation [Recovered/Resolved with Sequelae]
  - Eosinophil count increased [Unknown]
  - Stomatitis [Recovered/Resolved]
  - Basophil count increased [Unknown]
  - Rash [Recovered/Resolved with Sequelae]
  - Menstruation irregular [Not Recovered/Not Resolved]

NARRATIVE: CASE EVENT DATE: 20151014
